FAERS Safety Report 8200363-5 (Version None)
Quarter: 2012Q1

REPORT INFORMATION
  Report Type: 
  Country: None (occurrence: None)
  Receive Date: 20120312
  Receipt Date: 20120301
  Transmission Date: 20120608
  Serious: Yes (Hospitalization)
  Sender: FDA-Public Use
  Company Number: NO-US-EMD SERONO, INC.-E2B_7111548

PATIENT
  Sex: Male

DRUGS (4)
  1. TESTOSTERONE [Suspect]
     Indication: PRODUCT USED FOR UNKNOWN INDICATION
  2. TRENBOLONE [Suspect]
     Indication: PRODUCT USED FOR UNKNOWN INDICATION
  3. SOMATROPIN [Suspect]
     Indication: PRODUCT USED FOR UNKNOWN INDICATION
  4. ANADROL [Suspect]
     Indication: PRODUCT USED FOR UNKNOWN INDICATION
     Route: 048

REACTIONS (3)
  - NEPHROTIC SYNDROME [None]
  - OEDEMA PERIPHERAL [None]
  - SCROTAL OEDEMA [None]
